FAERS Safety Report 7955110-9 (Version None)
Quarter: 2011Q4

REPORT INFORMATION
  Report Type: 
  Country: None (occurrence: None)
  Receive Date: 20111202
  Receipt Date: 20111130
  Transmission Date: 20120403
  Serious: Yes (Other)
  Sender: FDA-Public Use
  Company Number: FR-EISAI INC-E2090-00659-SPO-FR

PATIENT
  Sex: Female

DRUGS (4)
  1. TRILEPTAL [Concomitant]
     Indication: EPILEPSY
     Route: 048
     Dates: start: 20070101, end: 20081017
  2. ZONEGRAN [Suspect]
     Dosage: DOSE INCREASED
     Route: 048
     Dates: start: 20081101, end: 20081207
  3. ZONEGRAN [Suspect]
     Dosage: UNKNOWN
     Route: 048
     Dates: start: 20081208, end: 20081219
  4. ZONEGRAN [Suspect]
     Indication: EPILEPSY
     Route: 048
     Dates: start: 20081017, end: 20081101

REACTIONS (2)
  - PRURITUS [None]
  - RASH ERYTHEMATOUS [None]
